FAERS Safety Report 23260790 (Version 1)
Quarter: 2023Q4

REPORT INFORMATION
  Report Type: Spontaneous
  Country: US (occurrence: US)
  Receive Date: 20231205
  Receipt Date: 20231205
  Transmission Date: 20240110
  Serious: Yes (Other)
  Sender: FDA-Public Use
  Company Number: US-STERISCIENCE B.V.-2022-ST-000531

PATIENT
  Age: 52 Year
  Sex: Female

DRUGS (4)
  1. BUPIVACAINE [Suspect]
     Active Substance: BUPIVACAINE
     Indication: Arthralgia
     Dosage: 2 MILLILITER PER HOUR
     Route: 014
  2. BUPIVACAINE [Suspect]
     Active Substance: BUPIVACAINE
     Dosage: 8 MILLILITER
     Route: 065
  3. EPINEPHRINE [Suspect]
     Active Substance: EPINEPHRINE
     Indication: Arthralgia
     Dosage: 2 MILLILITER PER HOUR
  4. TRIAMCINOLONE [Concomitant]
     Active Substance: TRIAMCINOLONE
     Indication: Arthralgia
     Dosage: 2 MILLILITER
     Route: 065

REACTIONS (2)
  - Chondrolysis [Unknown]
  - Off label use [Unknown]
